FAERS Safety Report 14367530 (Version 1)
Quarter: 2018Q1

REPORT INFORMATION
  Report Type: Spontaneous
  Country: US (occurrence: US)
  Receive Date: 20180108
  Receipt Date: 20180108
  Transmission Date: 20180509
  Serious: No
  Sender: FDA-Public Use
  Company Number: None

PATIENT
  Age: 24 Year
  Sex: Male

DRUGS (13)
  1. LINACLOTIDE [Concomitant]
     Active Substance: LINACLOTIDE
  2. ONDANSETRON [Concomitant]
     Active Substance: ONDANSETRON
  3. DRONABINOL. [Concomitant]
     Active Substance: DRONABINOL
  4. LORAZEPAM. [Concomitant]
     Active Substance: LORAZEPAM
  5. PROMETHAZINE [Concomitant]
     Active Substance: PROMETHAZINE\PROMETHAZINE HYDROCHLORIDE
  6. GABAPENTIN. [Concomitant]
     Active Substance: GABAPENTIN
  7. METHYLNALTREXONE [Concomitant]
     Active Substance: METHYLNALTREXONE
  8. PAROXETINE. [Concomitant]
     Active Substance: PAROXETINE
  9. METOCLOPRAMIDE. [Suspect]
     Active Substance: METOCLOPRAMIDE
     Indication: GASTROOESOPHAGEAL REFLUX DISEASE
     Route: 048
     Dates: start: 20180105, end: 20180106
  10. DANTROLENE. [Concomitant]
     Active Substance: DANTROLENE SODIUM
  11. FENTANYL TRANSDERMAL SYSTEM [Concomitant]
     Active Substance: FENTANYL
  12. BACLOFEN. [Concomitant]
     Active Substance: BACLOFEN
  13. PSEUDOEPHEDRINE [Concomitant]
     Active Substance: PSEUDOEPHEDRINE

REACTIONS (2)
  - Anxiety [None]
  - Therapy cessation [None]

NARRATIVE: CASE EVENT DATE: 20180106
